FAERS Safety Report 20751840 (Version 1)
Quarter: 2022Q2

REPORT INFORMATION
  Report Type: Spontaneous
  Country: US (occurrence: US)
  Receive Date: 20220426
  Receipt Date: 20220426
  Transmission Date: 20220721
  Serious: No
  Sender: FDA-Public Use
  Company Number: US-PFIZER INC-202101109989

PATIENT
  Age: 75 Year
  Sex: Female
  Weight: 63.5 kg

DRUGS (2)
  1. GABAPENTIN [Suspect]
     Active Substance: GABAPENTIN
     Indication: Burning sensation
     Dosage: 300 MG, DAILY (TAKES AT NIGHT, SOMETIMES IN DAY, BUT ONLY ONCE A DAY)
     Route: 048
     Dates: start: 2020
  2. GABAPENTIN [Suspect]
     Active Substance: GABAPENTIN
     Indication: Neuropathy peripheral

REACTIONS (7)
  - Off label use [Unknown]
  - Expired product administered [Unknown]
  - Extra dose administered [Unknown]
  - Enuresis [Unknown]
  - Somnolence [Unknown]
  - Paraesthesia [Unknown]
  - Burning sensation [Unknown]
